FAERS Safety Report 20483136 (Version 2)
Quarter: 2022Q2

REPORT INFORMATION
  Report Type: Report from Study
  Country: CN (occurrence: CN)
  Receive Date: 20220217
  Receipt Date: 20220608
  Transmission Date: 20220721
  Serious: Yes (Hospitalization, Other)
  Sender: FDA-Public Use
  Company Number: CN-AUROBINDO-AUR-APL-2021-046784

PATIENT
  Age: 65 Year
  Sex: Female

DRUGS (1)
  1. EVOMELA [Suspect]
     Active Substance: MELPHALAN HYDROCHLORIDE
     Indication: Plasma cell myeloma
     Dosage: 145.42 MILLIGRAM, ONCE A DAY
     Route: 042
     Dates: start: 20200908, end: 20200909

REACTIONS (14)
  - Stomatitis [Recovered/Resolved]
  - Mucosal inflammation [Recovered/Resolved]
  - Red blood cell count decreased [Recovering/Resolving]
  - Aspartate aminotransferase increased [Recovered/Resolved]
  - Cystatin C increased [Recovered/Resolved]
  - Hypoalbuminaemia [Recovered/Resolved]
  - Protein total decreased [Recovered/Resolved]
  - Globulins decreased [Recovered/Resolved]
  - Oral pain [Recovered/Resolved]
  - Diarrhoea [Recovered/Resolved]
  - Decreased appetite [Recovered/Resolved]
  - Asthenia [Recovered/Resolved]
  - Dysphagia [Recovered/Resolved]
  - Nausea [Recovered/Resolved]

NARRATIVE: CASE EVENT DATE: 20200909
